FAERS Safety Report 5638531-9 (Version None)
Quarter: 2008Q1

REPORT INFORMATION
  Report Type: 
  Country: None (occurrence: None)
  Receive Date: 20080226
  Receipt Date: 20070321
  Transmission Date: 20080703
  Serious: No
  Sender: FDA-Public Use
  Company Number: A0644694A

PATIENT
  Sex: Female

DRUGS (1)
  1. IMITREX [Suspect]
     Indication: HEADACHE
     Route: 065

REACTIONS (2)
  - DRUG EFFECT DECREASED [None]
  - HEADACHE [None]
